FAERS Safety Report 7135970-4 (Version None)
Quarter: 2010Q4

REPORT INFORMATION
  Report Type: 
  Country: None (occurrence: None)
  Receive Date: 20101204
  Receipt Date: 20101102
  Transmission Date: 20110411
  Serious: No
  Sender: FDA-Public Use
  Company Number: US-BAYER-201023571BCC

PATIENT

DRUGS (1)
  1. ONE A DAY ENERGY [Suspect]
     Dosage: DAILY DOSE 1 DF
     Dates: end: 20101030

REACTIONS (2)
  - NAUSEA [None]
  - VOMITING [None]
